FAERS Safety Report 23100992 (Version 1)
Quarter: 2023Q4

REPORT INFORMATION
  Report Type: Spontaneous
  Country: US (occurrence: None)
  Receive Date: 20231021
  Receipt Date: 20231021
  Transmission Date: 20240110
  Serious: Yes (Hospitalization)
  Sender: FDA-Public Use
  Company Number: None

PATIENT
  Age: 71 Year
  Sex: Male
  Weight: 80 kg

DRUGS (1)
  1. LISINOPRIL [Suspect]
     Active Substance: LISINOPRIL
     Dosage: FREQUENCY : TWICE A DAY;?
     Route: 048
     Dates: start: 20210913, end: 20221022

REACTIONS (1)
  - Angioedema [None]

NARRATIVE: CASE EVENT DATE: 20221022
